FAERS Safety Report 7345032-9 (Version None)
Quarter: 2011Q1

REPORT INFORMATION
  Report Type: 
  Country: None (occurrence: None)
  Receive Date: 20110310
  Receipt Date: 20110223
  Transmission Date: 20110831
  Serious: Yes (Other)
  Sender: FDA-Public Use
  Company Number: JP-VALEANT-2011VX000643

PATIENT
  Age: 73 Year
  Sex: Female

DRUGS (2)
  1. BETAMETHASONE SODIUM PHOSPHATE [Concomitant]
     Route: 065
  2. TIMOPTIC [Suspect]
     Indication: GLAUCOMA
     Route: 047

REACTIONS (6)
  - ULCERATIVE KERATITIS [None]
  - CORNEAL PERFORATION [None]
  - TOXICITY TO VARIOUS AGENTS [None]
  - CORNEAL THINNING [None]
  - KERATITIS HERPETIC [None]
  - KERATOPATHY [None]
